FAERS Safety Report 16503963 (Version 1)
Quarter: 2019Q3

REPORT INFORMATION
  Report Type: Spontaneous
  Country: FR (occurrence: FR)
  Receive Date: 20190701
  Receipt Date: 20190701
  Transmission Date: 20191004
  Serious: Yes (Hospitalization)
  Sender: FDA-Public Use
  Company Number: FR-MYLANLABS-2019M1060229

PATIENT
  Sex: Male

DRUGS (1)
  1. QUETIAPINE MYLAN [Suspect]
     Active Substance: QUETIAPINE
     Indication: PRODUCT USED FOR UNKNOWN INDICATION
     Dosage: 300 MILLIGRAM, 5XD

REACTIONS (4)
  - Somnolence [Unknown]
  - Overdose [Unknown]
  - Incorrect dose administered [Unknown]
  - Product quality issue [Unknown]
